FAERS Safety Report 13985493 (Version 2)
Quarter: 2018Q1

REPORT INFORMATION
  Report Type: Report from Study
  Country: US (occurrence: US)
  Receive Date: 20170919
  Receipt Date: 20180228
  Transmission Date: 20180508
  Serious: Yes (Life-Threatening, Other)
  Sender: FDA-Public Use
  Company Number: PHEH2017US029303

PATIENT
  Sex: Female

DRUGS (7)
  1. HYDROCORTISONE. [Suspect]
     Active Substance: HYDROCORTISONE
     Indication: SKIN DISORDER
     Dosage: 2.5 %, UNK
     Route: 065
  2. GLEEVEC [Suspect]
     Active Substance: IMATINIB MESYLATE
     Indication: PRODUCT USED FOR UNKNOWN INDICATION
     Dosage: 400 MG, QD
     Route: 065
  3. TRICALM HYDROGEL [Suspect]
     Active Substance: ALUMINUM ACETATE
     Indication: SWELLING
  4. TRICALM HYDROGEL [Suspect]
     Active Substance: ALUMINUM ACETATE
     Indication: LIMB INJURY
     Route: 065
  5. ARNICA [Suspect]
     Active Substance: ARNICA MONTANA FLOWER
     Indication: PRODUCT USED FOR UNKNOWN INDICATION
     Route: 065
  6. SYNTHROID [Concomitant]
     Active Substance: LEVOTHYROXINE SODIUM
     Indication: PRODUCT USED FOR UNKNOWN INDICATION
     Dosage: UNK
     Route: 065
  7. ESTRACE [Concomitant]
     Active Substance: ESTRADIOL
     Indication: PRODUCT USED FOR UNKNOWN INDICATION
     Route: 065

REACTIONS (25)
  - Ill-defined disorder [Unknown]
  - Joint swelling [Recovering/Resolving]
  - Hot flush [Unknown]
  - Vein disorder [Unknown]
  - Feeling abnormal [Unknown]
  - Headache [Unknown]
  - Oedema [Unknown]
  - Abdominal pain upper [Unknown]
  - Skin disorder [Unknown]
  - Blood creatine increased [Unknown]
  - Hypoaesthesia [Unknown]
  - Pruritus [Unknown]
  - Monoplegia [Unknown]
  - Thirst [Unknown]
  - Paraesthesia [Unknown]
  - Diarrhoea [Unknown]
  - Palpitations [Unknown]
  - Sleep disorder [Unknown]
  - Chest discomfort [Unknown]
  - Peripheral swelling [Unknown]
  - Dry mouth [Unknown]
  - Dry eye [Unknown]
  - Gastrointestinal disorder [Unknown]
  - Limb injury [Unknown]
  - Dry skin [Unknown]
